FAERS Safety Report 7599782-X (Version None)
Quarter: 2011Q2

REPORT INFORMATION
  Report Type: 
  Country: None (occurrence: None)
  Receive Date: 20110629
  Receipt Date: 20110620
  Transmission Date: 20111010
  Serious: Yes (Life-Threatening, Hospitalization, Other)
  Sender: FDA-Public Use
  Company Number: GB-ACCORD-005364

PATIENT
  Age: 59 Year
  Sex: Male

DRUGS (18)
  1. CLARITHROMYCIN [Suspect]
     Indication: PRODUCT USED FOR UNKNOWN INDICATION
     Dosage: 250.00-MG-2.00 TIMES PER-1.0DAYS
  2. FLOXACILLIN SODIUM [Concomitant]
  3. CALCICHEW(CALCICHEW) [Concomitant]
  4. CEFTRIAXONE [Concomitant]
  5. GLICLAZIDE(GLICLAZIDE) [Concomitant]
  6. ALLOPURINOL [Concomitant]
  7. GENTAMICIN [Concomitant]
  8. LANSOPRAZOLE [Concomitant]
  9. FUSIDIN(FUSIDIN) [Suspect]
     Indication: ARTHRITIS BACTERIAL
     Dosage: 500.00-MG-3.00 TIMES PER-1.0DAYS
  10. ALFACALCIDOL(ALFACALCIDOL) [Concomitant]
  11. IRON SUCROSE(IRON SUCROSE) [Concomitant]
  12. SIMVASTATIN [Suspect]
     Indication: PRODUCT USED FOR UNKNOWN INDICATION
     Dosage: 20.00-MG-1.00 TIMES PER-1.0DAYS / ORAL
     Route: 048
  13. CLOPIDOGREL [Concomitant]
  14. FOLIC ACID [Concomitant]
  15. ERYTHROPOETIN(ERYTHROPOETIN) [Concomitant]
  16. ATENOLOL [Concomitant]
  17. DIPYRIDAMOLE [Concomitant]
  18. OROVITE(OROVITE) [Concomitant]

REACTIONS (7)
  - TOXICITY TO VARIOUS AGENTS [None]
  - DRUG INTERACTION [None]
  - DIALYSIS [None]
  - RENAL DISORDER [None]
  - RHABDOMYOLYSIS [None]
  - MYOTONIA [None]
  - GUILLAIN-BARRE SYNDROME [None]
